FAERS Safety Report 16766381 (Version 1)
Quarter: 2019Q3

REPORT INFORMATION
  Report Type: Report from Study
  Country: CA (occurrence: CA)
  Receive Date: 20190903
  Receipt Date: 20190903
  Transmission Date: 20191005
  Serious: Yes (Other)
  Sender: FDA-Public Use
  Company Number: CA-EMD SERONO-9112978

PATIENT
  Sex: Female

DRUGS (2)
  1. MAVENCLAD [Suspect]
     Active Substance: CLADRIBINE
     Indication: MULTIPLE SCLEROSIS
     Dosage: FIRST WEEK THERAPY
     Route: 048
     Dates: start: 20180925
  2. MAVENCLAD [Suspect]
     Active Substance: CLADRIBINE
     Dosage: SECOND WEEK THERAPY?LAST DOSE SCHEDULED ON 27 OCT 2018 BUT ADMINISTERED ON 29 OCT 2018.
     Route: 048
     Dates: start: 20181023, end: 20181029

REACTIONS (2)
  - Cyst [Not Recovered/Not Resolved]
  - Breast cyst [Not Recovered/Not Resolved]
